FAERS Safety Report 20813086 (Version 2)
Quarter: 2022Q2

REPORT INFORMATION
  Report Type: Spontaneous
  Country: US (occurrence: US)
  Receive Date: 20220511
  Receipt Date: 20220612
  Transmission Date: 20220721
  Serious: Yes (Hospitalization)
  Sender: FDA-Public Use
  Company Number: US-BRISTOL-MYERS SQUIBB COMPANY-2022-034445

PATIENT
  Age: 81 Year
  Sex: Female
  Weight: 68.4 kg

DRUGS (2)
  1. REVLIMID [Suspect]
     Active Substance: LENALIDOMIDE
     Indication: Plasma cell myeloma
     Dosage: 3 WEEKS ON AND 1 WEEK OFF
     Route: 048
     Dates: start: 20210723
  2. REVLIMID [Suspect]
     Active Substance: LENALIDOMIDE
     Dosage: Q OTHER DAY
     Route: 048
     Dates: start: 20210701, end: 20220529

REACTIONS (2)
  - Blood glucose decreased [Unknown]
  - Urinary tract infection [Unknown]

NARRATIVE: CASE EVENT DATE: 20220430
